FAERS Safety Report 9059109 (Version 1)
Quarter: 2013Q1

REPORT INFORMATION
  Report Type: Spontaneous
  Country: US (occurrence: US)
  Receive Date: 20130211
  Receipt Date: 20130211
  Transmission Date: 20140127
  Serious: No
  Sender: FDA-Public Use
  Company Number: US-BRISTOL-MYERS SQUIBB COMPANY-16875908

PATIENT
  Age: 73 Year
  Sex: Female

DRUGS (3)
  1. METFORMIN HCL [Suspect]
  2. LANTUS [Suspect]
     Indication: TYPE 2 DIABETES MELLITUS
     Dosage: 1DF=60 UNITS?INJ SOLN-100IU/ML
     Route: 058
     Dates: start: 2009
  3. HUMALOG [Suspect]
     Indication: TYPE 2 DIABETES MELLITUS
     Dates: start: 2009

REACTIONS (2)
  - Myalgia [Unknown]
  - Gait disturbance [Unknown]
